FAERS Safety Report 16783395 (Version 1)
Quarter: 2019Q3

REPORT INFORMATION
  Report Type: Spontaneous
  Country: CA (occurrence: CA)
  Receive Date: 20190907
  Receipt Date: 20190907
  Transmission Date: 20191005
  Serious: Yes (Hospitalization, Other)
  Sender: FDA-Public Use
  Company Number: CA-AUROBINDO-AUR-APL-2019-058232

PATIENT

DRUGS (10)
  1. SANDOSTATIN [Suspect]
     Active Substance: OCTREOTIDE ACETATE
     Indication: CARCINOID TUMOUR
     Dosage: 30 MILLIGRAM (1 EVERY 1 MONTH)
     Route: 030
  2. NIFEDIPINE. [Concomitant]
     Active Substance: NIFEDIPINE
     Indication: PRODUCT USED FOR UNKNOWN INDICATION
     Dosage: UNK
     Route: 065
  3. PANTOPRAZOLE [Concomitant]
     Active Substance: PANTOPRAZOLE
     Indication: PRODUCT USED FOR UNKNOWN INDICATION
     Dosage: 40 MILLIGRAM, ONCE A DAY
     Route: 065
  4. METOPROLOL. [Suspect]
     Active Substance: METOPROLOL
     Indication: PRODUCT USED FOR UNKNOWN INDICATION
     Dosage: UNK
     Route: 048
  5. CLOPIDOGREL BISULFATE. [Concomitant]
     Active Substance: CLOPIDOGREL BISULFATE
     Indication: PRODUCT USED FOR UNKNOWN INDICATION
     Dosage: UNK
     Route: 065
  6. RAMIPRIL. [Suspect]
     Active Substance: RAMIPRIL
     Indication: PRODUCT USED FOR UNKNOWN INDICATION
     Dosage: UNK
     Route: 065
  7. LEVOTHYROXINE SODIUM. [Concomitant]
     Active Substance: LEVOTHYROXINE SODIUM
     Indication: PRODUCT USED FOR UNKNOWN INDICATION
     Dosage: UNK
     Route: 065
  8. PANTOLOC [Concomitant]
     Active Substance: PANTOPRAZOLE SODIUM
     Indication: PRODUCT USED FOR UNKNOWN INDICATION
     Dosage: UNK
     Route: 065
  9. SANDOSTATIN [Suspect]
     Active Substance: OCTREOTIDE ACETATE
     Dosage: 50 MICROGRAM
     Route: 058
  10. LASIX [Concomitant]
     Active Substance: FUROSEMIDE
     Indication: PRODUCT USED FOR UNKNOWN INDICATION
     Dosage: UNK
     Route: 065

REACTIONS (23)
  - Balance disorder [Recovering/Resolving]
  - Dysphagia [Recovering/Resolving]
  - Fall [Recovering/Resolving]
  - Gout [Recovering/Resolving]
  - Body temperature decreased [Recovering/Resolving]
  - Joint swelling [Recovering/Resolving]
  - Pain [Recovering/Resolving]
  - Weight decreased [Recovering/Resolving]
  - Contusion [Recovering/Resolving]
  - Rash pruritic [Recovering/Resolving]
  - Cough [Recovering/Resolving]
  - Vertigo [Recovering/Resolving]
  - Fatigue [Recovering/Resolving]
  - Hip fracture [Recovering/Resolving]
  - Head injury [Recovering/Resolving]
  - Herpes zoster [Recovering/Resolving]
  - Nausea [Recovering/Resolving]
  - Neck mass [Recovering/Resolving]
  - Scab [Recovering/Resolving]
  - Blood pressure systolic increased [Recovering/Resolving]
  - Cyst [Recovering/Resolving]
  - Decreased appetite [Recovering/Resolving]
  - Tooth fracture [Recovering/Resolving]
